FAERS Safety Report 6728673-9 (Version None)
Quarter: 2010Q2

REPORT INFORMATION
  Report Type: 
  Country: None (occurrence: None)
  Receive Date: 20100517
  Receipt Date: 20100505
  Transmission Date: 20101027
  Serious: Yes (Other)
  Sender: FDA-Public Use
  Company Number: FR-WYE-H14940110

PATIENT
  Age: 54 Year
  Sex: Female

DRUGS (2)
  1. EFFEXOR [Suspect]
     Indication: DEPRESSION
     Route: 048
  2. ACETYLSALICYLIC ACID [Suspect]
     Indication: HEADACHE
     Dosage: UNKNOWN

REACTIONS (4)
  - CEREBRAL HAEMORRHAGE [None]
  - COAGULOPATHY [None]
  - PERITONEAL HAEMORRHAGE [None]
  - PLATELET AGGREGATION ABNORMAL [None]
